FAERS Safety Report 7308942-4 (Version None)
Quarter: 2011Q1

REPORT INFORMATION
  Report Type: 
  Country: None (occurrence: None)
  Receive Date: 20110210
  Receipt Date: 20110201
  Transmission Date: 20110831
  Serious: Yes (Other)
  Sender: FDA-Public Use
  Company Number: 2010MA001322

PATIENT
  Age: 65 Year
  Sex: Female

DRUGS (15)
  1. POTASSIUM CHLORIDE [Concomitant]
  2. METOPROLOL TARTRATE [Concomitant]
  3. NOVOLOG MIX 70/30 [Concomitant]
  4. KLOR-CON [Concomitant]
  5. LISINOPRIL AND HYDROCHLOROTHIAZIDE [Concomitant]
  6. LANTUS [Concomitant]
  7. PLAVIX [Concomitant]
  8. SENNA [Concomitant]
  9. METOCLOPRAMIDE [Suspect]
     Dosage: PO
     Route: 048
     Dates: start: 20050401, end: 20080201
  10. DOCUSATE SODIUM [Concomitant]
  11. MINOCYCLINE HCL [Concomitant]
  12. ASPIRIN PLUS C [Concomitant]
  13. FUROSEMIDE [Concomitant]
  14. KAPIDEX [Concomitant]
  15. PAROXETINE [Concomitant]

REACTIONS (14)
  - EXCORIATION [None]
  - EMOTIONAL DISORDER [None]
  - INJURY [None]
  - ECONOMIC PROBLEM [None]
  - AKATHISIA [None]
  - PAIN [None]
  - BLOOD GLUCOSE FLUCTUATION [None]
  - TARDIVE DYSKINESIA [None]
  - EXTRAPYRAMIDAL DISORDER [None]
  - OEDEMA [None]
  - CYST [None]
  - FURUNCLE [None]
  - TYPE 2 DIABETES MELLITUS [None]
  - ANXIETY [None]
